FAERS Safety Report 7694365-5 (Version None)
Quarter: 2011Q3

REPORT INFORMATION
  Report Type: 
  Country: None (occurrence: None)
  Receive Date: 20110819
  Receipt Date: 20110812
  Transmission Date: 20111222
  Serious: Yes (Hospitalization, Disabling)
  Sender: FDA-Public Use
  Company Number: US-MERCK-1104USA04057

PATIENT
  Age: 59 Year
  Sex: Female

DRUGS (7)
  1. CITRACAL + D [Concomitant]
     Route: 065
     Dates: start: 19980101
  2. SYNTHROID [Concomitant]
     Route: 065
     Dates: start: 19990101
  3. FOSAMAX [Suspect]
     Indication: OSTEOPOROSIS
     Route: 048
     Dates: start: 19990101, end: 20070301
  4. VITAMINS (UNSPECIFIED) [Concomitant]
     Route: 065
     Dates: start: 19980101
  5. HORMONES (UNSPECIFIED) [Concomitant]
     Route: 065
     Dates: start: 19770101, end: 20000101
  6. FOSAMAX [Suspect]
     Route: 048
     Dates: start: 20001001, end: 20070301
  7. CORTICOSTEROIDS (UNSPECIFIED) [Concomitant]
     Route: 065
     Dates: start: 20040101, end: 20110101

REACTIONS (18)
  - ARTHROPATHY [None]
  - ENDODONTIC PROCEDURE [None]
  - BLOOD CHOLESTEROL INCREASED [None]
  - DEPRESSION [None]
  - GINGIVAL DISORDER [None]
  - LOW TURNOVER OSTEOPATHY [None]
  - STRESS FRACTURE [None]
  - MULTIPLE INJURIES [None]
  - DIABETES MELLITUS [None]
  - BONE DISORDER [None]
  - TOOTH DISORDER [None]
  - EDENTULOUS [None]
  - FEMUR FRACTURE [None]
  - OSTEOPOROSIS [None]
  - OSTEONECROSIS OF JAW [None]
  - PERIODONTAL DISEASE [None]
  - HYPERTENSION [None]
  - VITAMIN D DEFICIENCY [None]
